FAERS Safety Report 8611574-9 (Version None)
Quarter: 2012Q3

REPORT INFORMATION
  Report Type: 
  Country: None (occurrence: None)
  Receive Date: 20120822
  Receipt Date: 20120820
  Transmission Date: 20120928
  Serious: Yes (Death, Other)
  Sender: FDA-Public Use
  Company Number: PHHY2012BR072284

PATIENT
  Sex: Male

DRUGS (1)
  1. FORMOTEROL FUMARATE [Suspect]
     Indication: EMPHYSEMA
     Dosage: TWICE A DAY

REACTIONS (1)
  - MULTI-ORGAN FAILURE [None]
